FAERS Safety Report 13591498 (Version 1)
Quarter: 2017Q2

REPORT INFORMATION
  Report Type: Spontaneous
  Country: US (occurrence: US)
  Receive Date: 20170529
  Receipt Date: 20170529
  Transmission Date: 20170830
  Serious: No
  Sender: FDA-Public Use
  Company Number: US-PFIZER INC-2017233095

PATIENT
  Sex: Female

DRUGS (1)
  1. XELJANZ XR [Suspect]
     Active Substance: TOFACITINIB CITRATE
     Dosage: 11 MG, DAILY

REACTIONS (14)
  - Fatigue [Unknown]
  - Arthralgia [Unknown]
  - Joint stiffness [Unknown]
  - Musculoskeletal stiffness [Unknown]
  - Musculoskeletal pain [Unknown]
  - Joint swelling [Unknown]
  - Hypoaesthesia [Unknown]
  - Synovitis [Unknown]
  - Muscular weakness [Unknown]
  - Myalgia [Unknown]
  - Paraesthesia [Unknown]
  - Headache [Unknown]
  - Dry eye [Unknown]
  - Condition aggravated [Unknown]
